FAERS Safety Report 6851391-3 (Version None)
Quarter: 2010Q3

REPORT INFORMATION
  Report Type: 
  Country: None (occurrence: None)
  Receive Date: 20100717
  Receipt Date: 20080115
  Transmission Date: 20110219
  Serious: No
  Sender: FDA-Public Use
  Company Number: US-PFIZER INC-2008005325

PATIENT
  Sex: Female

DRUGS (4)
  1. CHANTIX [Suspect]
     Indication: SMOKING CESSATION THERAPY
     Dates: start: 20070901
  2. XANAX [Concomitant]
  3. CARDIZEM [Concomitant]
  4. SIMVASTATIN [Concomitant]

REACTIONS (2)
  - DYSPNOEA [None]
  - MALAISE [None]
